FAERS Safety Report 18369451 (Version 1)
Quarter: 2020Q4

REPORT INFORMATION
  Report Type: Spontaneous
  Country: US (occurrence: US)
  Receive Date: 20201012
  Receipt Date: 20201012
  Transmission Date: 20210114
  Serious: Yes (Hospitalization)
  Sender: FDA-Public Use
  Company Number: US-ROCHE-2692838

PATIENT
  Sex: Male

DRUGS (25)
  1. ESBRIET [Suspect]
     Active Substance: PIRFENIDONE
     Indication: IDIOPATHIC PULMONARY FIBROSIS
     Dosage: 3 CAPSULES THREE TIMES A DAYONGOING : YES
     Route: 048
     Dates: start: 20180830
  2. MAGNESIUM [Concomitant]
     Active Substance: MAGNESIUM
  3. NAPROXEN. [Concomitant]
     Active Substance: NAPROXEN
  4. VITAMIN B50 COMPLEX [Concomitant]
     Active Substance: BIOTIN\CALCIUM PANTOTHENATE\CHOLINE BITARTRATE\CYANOCOBALAMIN\FOLIC ACID\INOSITOL\NIACINAMIDE\PYRIDOXINE\RIBOFLAVIN\THIAMINE
  5. AFRIN [Concomitant]
     Active Substance: OXYMETAZOLINE
  6. ELIQUIS [Concomitant]
     Active Substance: APIXABAN
  7. LEVOTHYROXINE. [Concomitant]
     Active Substance: LEVOTHYROXINE
  8. OMEPRAZOLE. [Concomitant]
     Active Substance: OMEPRAZOLE
  9. SUMATRIPTAN. [Concomitant]
     Active Substance: SUMATRIPTAN
  10. VITAMIN D3 [Concomitant]
     Active Substance: CHOLECALCIFEROL
  11. GABAPENTIN. [Concomitant]
     Active Substance: GABAPENTIN
  12. MIRALAX [Concomitant]
     Active Substance: POLYETHYLENE GLYCOL 3350
  13. NITROSTAT [Concomitant]
     Active Substance: NITROGLYCERIN
  14. ATENOLOL. [Concomitant]
     Active Substance: ATENOLOL
  15. COENZYME Q10 [Concomitant]
     Active Substance: DIETARY SUPPLEMENT\UBIDECARENONE
  16. ONDANSETRON [Concomitant]
     Active Substance: ONDANSETRON
  17. TIZANIDINE. [Concomitant]
     Active Substance: TIZANIDINE
  18. ASPIRIN. [Concomitant]
     Active Substance: ASPIRIN
  19. FLOMAX [Concomitant]
     Active Substance: TAMSULOSIN HYDROCHLORIDE
  20. LINZESS [Concomitant]
     Active Substance: LINACLOTIDE
  21. OXYCODONE [Concomitant]
     Active Substance: OXYCODONE
  22. FUROSEMIDE. [Concomitant]
     Active Substance: FUROSEMIDE
  23. LOSARTAN POTASSIUM. [Concomitant]
     Active Substance: LOSARTAN POTASSIUM
  24. PRAVASTATIN. [Concomitant]
     Active Substance: PRAVASTATIN
  25. ZOLPIDEM [Concomitant]
     Active Substance: ZOLPIDEM TARTRATE

REACTIONS (1)
  - Pneumothorax [Unknown]
